FAERS Safety Report 24335604 (Version 3)
Quarter: 2024Q4

REPORT INFORMATION
  Report Type: Spontaneous
  Country: ES (occurrence: ES)
  Receive Date: 20240919
  Receipt Date: 20241218
  Transmission Date: 20250115
  Serious: Yes (Hospitalization, Other)
  Sender: ALKEM
  Company Number: None

PATIENT
  Age: 43 Year
  Sex: Female

DRUGS (7)
  1. MYCOPHENOLATE MOFETIL [Suspect]
     Active Substance: MYCOPHENOLATE MOFETIL
     Indication: Immunosuppressant drug therapy
     Dosage: UNK
     Route: 065
  2. TACROLIMUS [Suspect]
     Active Substance: TACROLIMUS
     Indication: Immunosuppressant drug therapy
     Dosage: 10.9 NANOGRAM PER MILLLIITER (AT ADMISSION)
     Route: 065
  3. TACROLIMUS [Suspect]
     Active Substance: TACROLIMUS
     Dosage: 6.8 NANOGRAM PER MILLLIITER (3 DAYS AFTER INITIATION OF TECOVIRIMAT (5TH DAY AFTER ADMISSION))
     Route: 065
  4. EVEROLIMUS [Suspect]
     Active Substance: EVEROLIMUS
     Indication: Immunosuppressant drug therapy
     Dosage: 3.2 NANOGRAM PER MILLLIITER (5 DAYS AFTER REDUCTION OF IMMUNOSUPPRESSION (34TH DAY AFTER ADMISSION))
     Route: 065
  5. EVEROLIMUS [Suspect]
     Active Substance: EVEROLIMUS
     Dosage: 7.8 NANOGRAM PER MILLLIITER (AT DISCHARGE (65TH DAY AFTER ADMISSION))
     Route: 065
  6. EVEROLIMUS [Suspect]
     Active Substance: EVEROLIMUS
     Dosage: 9.1 NANOGRAM PER MILLLIITER (AT OUTPATIENT CLINIC (10TH DAY AFTER DISCHARGE))
     Route: 065
  7. PREDNISONE [Suspect]
     Active Substance: PREDNISONE
     Indication: Immunosuppressant drug therapy
     Dosage: UNK
     Route: 065

REACTIONS (5)
  - Pulmonary mass [Recovering/Resolving]
  - Skin ulcer [Recovered/Resolved]
  - Pseudomonas infection [Unknown]
  - Monkeypox [Unknown]
  - Pleural effusion [Recovering/Resolving]
